FAERS Safety Report 6634761-8 (Version None)
Quarter: 2010Q1

REPORT INFORMATION
  Report Type: 
  Country: None (occurrence: None)
  Receive Date: 20100315
  Receipt Date: 20100310
  Transmission Date: 20100710
  Serious: Yes (Hospitalization)
  Sender: FDA-Public Use
  Company Number: US-MERCK-1003USA01498

PATIENT
  Age: 74 Year
  Sex: Female

DRUGS (3)
  1. FOSAMAX [Suspect]
     Indication: OSTEOPOROSIS
     Route: 048
     Dates: start: 19960101, end: 20081101
  2. EVISTA [Concomitant]
     Route: 065
  3. BONIVA [Concomitant]
     Route: 065
     Dates: start: 20080101

REACTIONS (3)
  - BONE DISORDER [None]
  - FALL [None]
  - FEMUR FRACTURE [None]
